FAERS Safety Report 8269374-8 (Version None)
Quarter: 2012Q2

REPORT INFORMATION
  Report Type: 
  Country: None (occurrence: None)
  Receive Date: 20120409
  Receipt Date: 20120330
  Transmission Date: 20120825
  Serious: Yes (Hospitalization)
  Sender: FDA-Public Use
  Company Number: JP-FRI-1000029605

PATIENT
  Age: 80 Year
  Sex: Female

DRUGS (2)
  1. MEMANTINE [Suspect]
     Indication: DEMENTIA ALZHEIMER'S TYPE
     Dosage: 5 MG
     Route: 048
     Dates: start: 20120117, end: 20120320
  2. GRAMALIL [Concomitant]

REACTIONS (4)
  - VOMITING [None]
  - HEPATIC FUNCTION ABNORMAL [None]
  - OXYGEN SATURATION DECREASED [None]
  - DYSPHAGIA [None]
